FAERS Safety Report 4761018-2 (Version None)
Quarter: 2005Q3

REPORT INFORMATION
  Report Type: 
  Country: None (occurrence: None)
  Receive Date: 20050901
  Receipt Date: 20050822
  Transmission Date: 20060218
  Serious: Yes (Hospitalization)
  Sender: FDA-Public Use
  Company Number: 2005-03125

PATIENT
  Age: 38 Year
  Sex: Female

DRUGS (4)
  1. ESTRADIOL [Suspect]
     Indication: HORMONE REPLACEMENT THERAPY
     Dosage: SEE IMAGE, ORAL
     Route: 048
     Dates: start: 20040101, end: 20050501
  2. ESTRADIOL [Suspect]
     Indication: HORMONE REPLACEMENT THERAPY
     Dosage: SEE IMAGE, ORAL
     Route: 048
     Dates: start: 20050501
  3. DIOVAN HCT (VALSARTAN) [Concomitant]
  4. CLARITIN [Concomitant]

REACTIONS (3)
  - ASTHMA [None]
  - CONDITION AGGRAVATED [None]
  - PNEUMONIA [None]
